FAERS Safety Report 5547684-2 (Version None)
Quarter: 2007Q4

REPORT INFORMATION
  Report Type: 
  Country: None (occurrence: None)
  Receive Date: 20071211
  Receipt Date: 20070228
  Transmission Date: 20080405
  Serious: No
  Sender: FDA-Public Use
  Company Number: US-AMGEN-KDL207488

PATIENT
  Sex: Female
  Weight: 86.7 kg

DRUGS (6)
  1. ENBREL [Suspect]
     Indication: POLYARTHRITIS
     Route: 058
     Dates: start: 20070105, end: 20070112
  2. PLAQUENIL [Concomitant]
  3. VITAMIN CAP [Concomitant]
  4. CELEBREX [Concomitant]
     Dates: start: 20050916
  5. CALCIUM [Concomitant]
  6. ASPIRIN [Concomitant]

REACTIONS (8)
  - ARTHRALGIA [None]
  - DIZZINESS [None]
  - HEADACHE [None]
  - INJECTION SITE ERYTHEMA [None]
  - INJECTION SITE PRURITUS [None]
  - MYALGIA [None]
  - PAIN [None]
  - VISION BLURRED [None]
